FAERS Safety Report 7035042-3 (Version None)
Quarter: 2010Q4

REPORT INFORMATION
  Report Type: 
  Country: None (occurrence: None)
  Receive Date: 20101008
  Receipt Date: 20101004
  Transmission Date: 20110411
  Serious: Yes (Death, Other)
  Sender: FDA-Public Use
  Company Number: DE-ROCHE-731386

PATIENT
  Age: 81 Year
  Sex: Female
  Weight: 73.8 kg

DRUGS (8)
  1. TRASTUZUMAB [Suspect]
     Indication: BREAST CANCER
     Dosage: DOSE: 6 (UNITS, FREQUENCY AND ROUTE: UNSPECIFIED)
     Route: 065
     Dates: start: 20081218, end: 20091210
  2. RAMIPRIL [Concomitant]
  3. ARIMIDEX [Concomitant]
     Indication: HORMONE THERAPY
     Dates: start: 20080925, end: 20100517
  4. TOREM [Concomitant]
     Dates: start: 20100324
  5. ALLOPURINOL [Concomitant]
  6. GLIMEPIRID [Concomitant]
     Dates: end: 20100324
  7. ASPIRIN [Concomitant]
     Dates: end: 20100324
  8. CLEXANE [Concomitant]
     Dosage: DRUG: CLEXANE 70.
     Dates: start: 20100324

REACTIONS (2)
  - ACUTE MYOCARDIAL INFARCTION [None]
  - DEATH [None]
